FAERS Safety Report 18609444 (Version 4)
Quarter: 2021Q3

REPORT INFORMATION
  Report Type: Report from Study
  Country: JP (occurrence: JP)
  Receive Date: 20201214
  Receipt Date: 20210811
  Transmission Date: 20211014
  Serious: Yes (Other)
  Sender: FDA-Public Use
  Company Number: JP-SA-2020SA316744

PATIENT
  Age: 72 Year
  Sex: Female
  Weight: 53 kg

DRUGS (57)
  1. ISATUXIMAB [Suspect]
     Active Substance: ISATUXIMAB
     Dosage: 530MG (10MG/KG)
     Route: 042
     Dates: start: 20210216, end: 20210216
  2. ISATUXIMAB [Suspect]
     Active Substance: ISATUXIMAB
     Dosage: 530MG (10MG/KG)
     Route: 042
     Dates: start: 20210316, end: 20210316
  3. DEXAMETHASONE. [Suspect]
     Active Substance: DEXAMETHASONE
     Dosage: 20 MG/DAY
     Route: 042
     Dates: start: 20201013
  4. D CHLORPHENIRAMINE MALEATE TAKEDA TEVA [Concomitant]
     Dosage: DAILY DOSE: 10 MG
     Route: 042
     Dates: start: 20210119, end: 20210119
  5. D CHLORPHENIRAMINE MALEATE TAKEDA TEVA [Concomitant]
     Dosage: DAILY DOSE: 10 MG
     Route: 042
     Dates: start: 20210707, end: 20210707
  6. LEVOFLOXACIN HEMIHYDRATE [Concomitant]
     Active Substance: LEVOFLOXACIN
     Indication: PROPHYLAXIS
     Dosage: UNK
     Route: 047
     Dates: start: 20191010
  7. KENKETU GLOVENIN?I [Concomitant]
     Active Substance: HUMAN IMMUNOGLOBULIN G
     Indication: PRODUCT USED FOR UNKNOWN INDICATION
     Dosage: UNK
     Route: 042
     Dates: start: 20200915, end: 20200915
  8. KENKETU GLOVENIN?I [Concomitant]
     Active Substance: HUMAN IMMUNOGLOBULIN G
     Dosage: UNK
     Route: 042
     Dates: start: 20210609, end: 20210609
  9. ISATUXIMAB [Suspect]
     Active Substance: ISATUXIMAB
     Indication: PLASMA CELL MYELOMA
     Dosage: 506.5 MG (10 MG/KG)
     Route: 042
     Dates: start: 20180821, end: 20201110
  10. ACETAMINOPHEN. [Concomitant]
     Active Substance: ACETAMINOPHEN
     Indication: PROPHYLAXIS
     Dosage: DAILY DOSE: 1000 MG
     Route: 048
     Dates: start: 20200818, end: 20200818
  11. DENOSUMAB [Concomitant]
     Active Substance: DENOSUMAB
     Indication: PROPHYLAXIS
     Dosage: UNK
     Route: 058
     Dates: start: 20190402
  12. ISATUXIMAB [Suspect]
     Active Substance: ISATUXIMAB
     Dosage: 530MG (10MG/KG)
     Route: 042
     Dates: start: 20210119, end: 20210119
  13. ISATUXIMAB [Suspect]
     Active Substance: ISATUXIMAB
     Dosage: 520 MG (10 MG/KG)
     Route: 042
     Dates: start: 20210707, end: 20210707
  14. LENALIDOMIDE [Suspect]
     Active Substance: LENALIDOMIDE
     Indication: PLASMA CELL MYELOMA
     Dosage: 25 MG
     Route: 048
     Dates: start: 20180821, end: 20180917
  15. LENALIDOMIDE [Suspect]
     Active Substance: LENALIDOMIDE
     Dosage: 20 MG
     Route: 048
     Dates: start: 20180121
  16. VALACICLOVIR [Concomitant]
     Active Substance: VALACYCLOVIR HYDROCHLORIDE
     Indication: PROPHYLAXIS
     Dosage: 1 DF, BID
     Route: 048
     Dates: start: 20180821
  17. BAYASPIRIN [Concomitant]
     Active Substance: ASPIRIN
     Indication: THROMBOSIS PROPHYLAXIS
     Dosage: 1 DF, QD
     Route: 048
     Dates: start: 20180821, end: 20201124
  18. DENOTAS [Concomitant]
     Active Substance: CALCIUM CARBONATE\CHOLECALCIFEROL\MAGNESIUM CARBONATE
     Indication: PROPHYLAXIS
     Dosage: 2 DF, QD
     Route: 048
     Dates: start: 20190319
  19. FAMOTIDINE. [Concomitant]
     Active Substance: FAMOTIDINE
     Dosage: DAILY DOSE: 20 MG
     Route: 042
     Dates: start: 20210609, end: 20210609
  20. D CHLORPHENIRAMINE MALEATE TAKEDA TEVA [Concomitant]
     Indication: PROPHYLAXIS
     Dosage: DAILY DOSE: 10 MG
     Route: 042
     Dates: start: 20200818, end: 20200818
  21. D CHLORPHENIRAMINE MALEATE TAKEDA TEVA [Concomitant]
     Dosage: DAILY DOSE: 10 MG
     Route: 042
     Dates: start: 20210609, end: 20210609
  22. ISATUXIMAB [Suspect]
     Active Substance: ISATUXIMAB
     Dosage: 506 MG (10 MG/KG)
     Route: 042
     Dates: start: 20201013, end: 20201013
  23. ISATUXIMAB [Suspect]
     Active Substance: ISATUXIMAB
     Dosage: 544MG (10MG/KG)
     Route: 042
     Dates: start: 20201222, end: 20201222
  24. ISATUXIMAB [Suspect]
     Active Substance: ISATUXIMAB
     Dosage: 520 MG (10 MG/KG)
     Route: 042
     Dates: start: 20210804, end: 20210804
  25. BORTEZOMIB. [Suspect]
     Active Substance: BORTEZOMIB
     Indication: PLASMA CELL MYELOMA
     Dosage: 1.9 MG (1.3 MG/M2)
     Route: 058
     Dates: start: 20180821, end: 20190125
  26. DEXAMETHASONE. [Suspect]
     Active Substance: DEXAMETHASONE
     Dosage: 20 MG/DAY
     Route: 048
     Dates: start: 20201103
  27. ACETAMINOPHEN. [Concomitant]
     Active Substance: ACETAMINOPHEN
     Dosage: UNK
     Route: 048
     Dates: start: 20180824
  28. FAMOTIDINE. [Concomitant]
     Active Substance: FAMOTIDINE
     Indication: PROPHYLAXIS
     Dosage: DAILY DOSE: 20 MG
     Route: 042
     Dates: start: 20200818, end: 20200818
  29. ISATUXIMAB [Suspect]
     Active Substance: ISATUXIMAB
     Dosage: 520 MG (10 MG/KG)
     Route: 042
     Dates: start: 20201124, end: 20201124
  30. MAGNESIUM OXIDE. [Concomitant]
     Active Substance: MAGNESIUM OXIDE
     Indication: CONSTIPATION
     Dosage: 1 DF, TID
     Route: 048
     Dates: start: 20180831
  31. FAMOTIDINE. [Concomitant]
     Active Substance: FAMOTIDINE
     Dosage: DAILY DOSE: 20 MG
     Route: 042
     Dates: start: 20210707, end: 20210707
  32. MAGNESIUM CARBONATE [Concomitant]
     Active Substance: MAGNESIUM CARBONATE
     Indication: PROPHYLAXIS
     Dosage: UNK
     Route: 048
     Dates: start: 20190319
  33. ISATUXIMAB [Suspect]
     Active Substance: ISATUXIMAB
     Dosage: 530MG (10MG/KG)
     Route: 042
     Dates: start: 20210414, end: 20210414
  34. ISATUXIMAB [Suspect]
     Active Substance: ISATUXIMAB
     Dosage: 530MG (10MG/KG)
     Route: 042
     Dates: start: 20210609, end: 20210609
  35. LENALIDOMIDE [Suspect]
     Active Substance: LENALIDOMIDE
     Dosage: 20 MG
     Route: 048
     Dates: start: 20201013, end: 20201102
  36. DEXAMETHASONE. [Suspect]
     Active Substance: DEXAMETHASONE
     Dosage: 20 MG
     Route: 048
     Dates: start: 20180822, end: 20181110
  37. DAIPHEN [Concomitant]
     Active Substance: SULFAMETHOXAZOLE\TRIMETHOPRIM
     Indication: INFECTION PROPHYLAXIS
     Dosage: 1 DF, QD
     Route: 048
     Dates: start: 20181225
  38. SENNOSIDE A [Concomitant]
     Active Substance: SENNOSIDE A
     Indication: CONSTIPATION
     Dosage: 2 DF, QD
     Route: 048
     Dates: start: 20180831
  39. ACETAMINOPHEN. [Concomitant]
     Active Substance: ACETAMINOPHEN
     Dosage: DAILY DOSE: 1000 MG
     Route: 048
     Dates: start: 20201222, end: 20201222
  40. D CHLORPHENIRAMINE MALEATE TAKEDA TEVA [Concomitant]
     Dosage: DAILY DOSE: 10 MG
     Route: 042
     Dates: start: 20201222, end: 20201222
  41. BETAMETHASONE SODIUM PHOSPHATE [Concomitant]
     Active Substance: BETAMETHASONE SODIUM PHOSPHATE
     Indication: PROPHYLAXIS
     Dosage: UNK
     Route: 047
     Dates: start: 20191010
  42. DEXAMETHASONE. [Suspect]
     Active Substance: DEXAMETHASONE
     Dosage: 20 MG/DAY
     Route: 048
     Dates: start: 20201027
  43. ACETAMINOPHEN. [Concomitant]
     Active Substance: ACETAMINOPHEN
     Dosage: DAILY DOSE: 1000 MG
     Route: 048
     Dates: start: 20210609, end: 20210609
  44. ACETAMINOPHEN. [Concomitant]
     Active Substance: ACETAMINOPHEN
     Dosage: DAILY DOSE: 1000 MG
     Route: 048
     Dates: start: 20210707, end: 20210707
  45. FAMOTIDINE. [Concomitant]
     Active Substance: FAMOTIDINE
     Dosage: DAILY DOSE: 20 MG
     Route: 042
     Dates: start: 20201013, end: 20201013
  46. D CHLORPHENIRAMINE MALEATE TAKEDA TEVA [Concomitant]
     Dosage: DAILY DOSE: 10 MG
     Route: 042
     Dates: start: 20201013, end: 20201013
  47. FERROUS CITRATE [Concomitant]
     Active Substance: FERROUS CITRATE
     Indication: IRON DEFICIENCY ANAEMIA
     Dosage: UNK
     Route: 048
     Dates: start: 20191029
  48. KENKETU GLOVENIN?I [Concomitant]
     Active Substance: HUMAN IMMUNOGLOBULIN G
     Dosage: UNK
     Route: 042
     Dates: start: 20201013, end: 20201013
  49. ISATUXIMAB [Suspect]
     Active Substance: ISATUXIMAB
     Dosage: 530MG (10MG/KG)
     Route: 042
     Dates: start: 20210512, end: 20210512
  50. DEXAMETHASONE. [Suspect]
     Active Substance: DEXAMETHASONE
     Indication: PLASMA CELL MYELOMA
     Dosage: 20 MG
     Route: 042
     Dates: start: 20180821, end: 20180821
  51. DEXAMETHASONE. [Suspect]
     Active Substance: DEXAMETHASONE
     Dosage: 20 MG
     Route: 065
  52. DEXAMETHASONE. [Suspect]
     Active Substance: DEXAMETHASONE
     Dosage: 20 MG/DAY
     Route: 048
     Dates: start: 20201020
  53. ACETAMINOPHEN. [Concomitant]
     Active Substance: ACETAMINOPHEN
     Indication: PRODUCT USED FOR UNKNOWN INDICATION
     Dosage: DAILY DOSE: 1000 MG
     Route: 048
     Dates: start: 20201013, end: 20201013
  54. ACETAMINOPHEN. [Concomitant]
     Active Substance: ACETAMINOPHEN
     Dosage: DAILY DOSE: 1000 MG
     Route: 048
     Dates: start: 20210119, end: 20210119
  55. FAMOTIDINE. [Concomitant]
     Active Substance: FAMOTIDINE
     Dosage: DAILY DOSE: 20 MG
     Route: 042
     Dates: start: 20201222, end: 20201222
  56. FAMOTIDINE. [Concomitant]
     Active Substance: FAMOTIDINE
     Dosage: DAILY DOSE: 20 MG
     Route: 042
     Dates: start: 20210119, end: 20210119
  57. DICLOFENAC SODIUM. [Concomitant]
     Active Substance: DICLOFENAC SODIUM
     Indication: PROPHYLAXIS
     Dosage: UNK
     Route: 047
     Dates: start: 20191010

REACTIONS (1)
  - Myelodysplastic syndrome [Not Recovered/Not Resolved]

NARRATIVE: CASE EVENT DATE: 20201022
